FAERS Safety Report 4527471-4 (Version None)
Quarter: 2004Q4

REPORT INFORMATION
  Report Type: 
  Country: None (occurrence: None)
  Receive Date: 20041130
  Receipt Date: 20040915
  Transmission Date: 20050328
  Serious: No
  Sender: FDA-Public Use
  Company Number: WAES 0409USA01326

PATIENT
  Sex: Female

DRUGS (5)
  1. ZETIA [Suspect]
     Indication: BLOOD CHOLESTEROL INCREASED
     Dosage: 10 MG/DAILY/PO
     Route: 048
     Dates: start: 20040901, end: 20040911
  2. ZETIA [Suspect]
     Indication: DIABETES MELLITUS
     Dosage: 10 MG/DAILY/PO
     Route: 048
     Dates: start: 20040901, end: 20040911
  3. ACTOS [Concomitant]
  4. BENICAR [Concomitant]
  5. VERAPAMIL MSD LP [Concomitant]

REACTIONS (3)
  - CONSTIPATION [None]
  - OEDEMA MOUTH [None]
  - RASH [None]
